FAERS Safety Report 5861358-X (Version None)
Quarter: 2008Q3

REPORT INFORMATION
  Report Type: 
  Country: None (occurrence: None)
  Receive Date: 20080827
  Receipt Date: 20080428
  Transmission Date: 20090109
  Serious: No
  Sender: FDA-Public Use
  Company Number: US-ABBOTT-08P-163-0449307-00

PATIENT
  Sex: Male
  Weight: 75.818 kg

DRUGS (3)
  1. NIASPAN [Suspect]
     Indication: BLOOD CHOLESTEROL
     Dosage: ORANGE
     Route: 048
     Dates: start: 20071201
  2. NIASPAN [Suspect]
     Dosage: WHITE-NON COATED
     Route: 048
  3. DOXAZOSIN MESYLATE [Concomitant]
     Indication: BLOOD PRESSURE MANAGEMENT

REACTIONS (2)
  - PRURITUS [None]
  - RASH [None]
